FAERS Safety Report 18630728 (Version 1)
Quarter: 2020Q4

REPORT INFORMATION
  Report Type: Spontaneous
  Country: US (occurrence: US)
  Receive Date: 20201218
  Receipt Date: 20201218
  Transmission Date: 20210114
  Serious: No
  Sender: FDA-Public Use
  Company Number: US-JNJFOC-20201218536

PATIENT
  Age: 33 Year
  Sex: Male
  Weight: 69.92 kg

DRUGS (2)
  1. ZYRTEC-D [Suspect]
     Active Substance: CETIRIZINE HYDROCHLORIDE\PSEUDOEPHEDRINE HYDROCHLORIDE
     Indication: PRURITUS
     Dosage: 1 TABLET ONCE A DAY; STOPPED DATE: RECENTLY
     Route: 048
     Dates: start: 202011
  2. ZYRTEC-D [Suspect]
     Active Substance: CETIRIZINE HYDROCHLORIDE\PSEUDOEPHEDRINE HYDROCHLORIDE
     Indication: NASAL CONGESTION

REACTIONS (1)
  - Drug ineffective [Unknown]
